FAERS Safety Report 17324452 (Version 2)
Quarter: 2020Q1

REPORT INFORMATION
  Report Type: Spontaneous
  Country: PT (occurrence: PT)
  Receive Date: 20200127
  Receipt Date: 20200129
  Transmission Date: 20200409
  Serious: Yes (Other)
  Sender: FDA-Public Use
  Company Number: PT-MYLANLABS-2020M1009535

PATIENT
  Age: 87 Year
  Sex: Female

DRUGS (10)
  1. STUGERON [Concomitant]
     Active Substance: CINNARIZINE
     Dosage: UNK
  2. ESOMEPRAZOLE. [Concomitant]
     Active Substance: ESOMEPRAZOLE MAGNESIUM
     Dosage: UNK
  3. OLMESARTAN MEDOXOMILO + HIDROCLOROTIAZIDA [Concomitant]
     Dosage: UNK
  4. INDERAL [Concomitant]
     Active Substance: PROPRANOLOL HYDROCHLORIDE
     Dosage: UNK
  5. SIMVASTATIN. [Concomitant]
     Active Substance: SIMVASTATIN
     Dosage: UNK
  6. LENDORMIN [Concomitant]
     Active Substance: BROTIZOLAM
  7. GLUCOMED                           /00943603/ [Concomitant]
     Dosage: UNK
  8. FERRO-GRADUMET                     /00023503/ [Concomitant]
     Dosage: UNK
  9. FLUOXETINE [Suspect]
     Active Substance: FLUOXETINE HYDROCHLORIDE
     Indication: DEPRESSION
     Dosage: 1 CP/DIA
     Route: 048
     Dates: start: 20190729, end: 20190921
  10. ALLOPURINOL. [Concomitant]
     Active Substance: ALLOPURINOL
     Dosage: UNK

REACTIONS (1)
  - Tremor [Recovered/Resolved]

NARRATIVE: CASE EVENT DATE: 20190815
